FAERS Safety Report 12556519 (Version 1)
Quarter: 2016Q3

REPORT INFORMATION
  Report Type: Spontaneous
  Country: IN (occurrence: IN)
  Receive Date: 20160714
  Receipt Date: 20160714
  Transmission Date: 20161109
  Serious: Yes (Hospitalization)
  Sender: FDA-Public Use
  Company Number: IN-ABBVIE-16P-078-1675171-00

PATIENT
  Age: 57 Year
  Sex: Male

DRUGS (2)
  1. VALPROATE SODIUM. [Suspect]
     Active Substance: VALPROATE SODIUM
     Indication: BIPOLAR DISORDER RELAPSE PROPHYLAXIS
     Route: 065
  2. OXCARBAZEPINE. [Suspect]
     Active Substance: OXCARBAZEPINE
     Indication: BIPOLAR DISORDER RELAPSE PROPHYLAXIS
     Route: 065

REACTIONS (10)
  - Fatigue [Unknown]
  - Hiccups [Unknown]
  - Oedema peripheral [Unknown]
  - Dysuria [Unknown]
  - Depressed level of consciousness [Unknown]
  - Hyponatraemia [Recovered/Resolved]
  - Vomiting [Unknown]
  - Weight increased [Unknown]
  - Decreased appetite [Unknown]
  - Hypophagia [Unknown]
